FAERS Safety Report 5817796-4 (Version None)
Quarter: 2008Q3

REPORT INFORMATION
  Report Type: 
  Country: None (occurrence: None)
  Receive Date: 20080722
  Receipt Date: 20080707
  Transmission Date: 20090109
  Serious: Yes (Other)
  Sender: FDA-Public Use
  Company Number: JP-GENENTECH-264416

PATIENT
  Sex: Male
  Weight: 43 kg

DRUGS (4)
  1. AVASTIN [Suspect]
     Indication: COLON CANCER
     Dosage: 5 MG/KG, Q2W
     Route: 041
     Dates: start: 20080514
  2. FLUOROURACIL [Suspect]
     Indication: COLON CANCER
  3. OXALIPLATIN [Suspect]
     Indication: COLON CANCER
     Route: 041
  4. CALCIUM LEVOFOLINATE [Suspect]
     Indication: COLON CANCER
     Route: 041

REACTIONS (1)
  - PYREXIA [None]
